FAERS Safety Report 7739829-0 (Version None)
Quarter: 2011Q3

REPORT INFORMATION
  Report Type: 
  Country: None (occurrence: None)
  Receive Date: 20110909
  Receipt Date: 20110830
  Transmission Date: 20111222
  Serious: Yes (Other)
  Sender: FDA-Public Use
  Company Number: PHEH2011US01702

PATIENT
  Sex: Female
  Weight: 59.5 kg

DRUGS (12)
  1. EXJADE [Suspect]
     Indication: SERUM FERRITIN INCREASED
  2. MULTI-VITAMINS [Concomitant]
     Dosage: UNK UKN, UNK
  3. LORAZEPAM [Concomitant]
     Dosage: 0.5 MG, UNK
  4. ALPRAZOLAM [Concomitant]
     Dosage: 0.5 MG, PRN
  5. EXJADE [Suspect]
     Indication: THALASSAEMIA
     Dosage: 1500 MG, QD
     Route: 048
     Dates: start: 20110810, end: 20110812
  6. OXYCODONE HCL [Concomitant]
     Dosage: 5 MG, UNK
  7. OMEPRAZOLE [Concomitant]
     Dosage: 20 MG, UNK
  8. TRAZODONE HCL [Concomitant]
     Dosage: 50 MG, UNK
  9. FLUDROCORTISONE ACETATE [Concomitant]
     Dosage: UNK UKN, UNK
  10. CALCIUM CARBONATE [Concomitant]
  11. VITAMIN D [Concomitant]
     Dosage: 1000 U, UNK
  12. DIAZEPAM [Concomitant]
     Dosage: 10 MG, PRN

REACTIONS (4)
  - EYE SWELLING [None]
  - TOXOPLASMOSIS [None]
  - VISION BLURRED [None]
  - EYE DISORDER [None]
